FAERS Safety Report 8072321-5 (Version None)
Quarter: 2011Q4

REPORT INFORMATION
  Report Type: 
  Country: None (occurrence: None)
  Receive Date: 20111222
  Receipt Date: 20111028
  Transmission Date: 20120403
  Serious: Yes (Hospitalization)
  Sender: FDA-Public Use
  Company Number: UTC-010874

PATIENT
  Age: 62 Year
  Sex: Female

DRUGS (2)
  1. LETAIRIS [Concomitant]
  2. TYVASO [Suspect]
     Indication: SYSTEMIC SCLEROSIS
     Dosage: 18 TO 54 MICROGRAMS (4 IN 1 D),INHALATION
     Route: 055
     Dates: start: 20110408

REACTIONS (1)
  - HEART RATE INCREASED [None]
